FAERS Safety Report 9076895 (Version 1)
Quarter: 2013Q1

REPORT INFORMATION
  Report Type: Report from Study
  Country: US (occurrence: US)
  Receive Date: 20130129
  Receipt Date: 20130129
  Transmission Date: 20140127
  Serious: No
  Sender: FDA-Public Use
  Company Number: US-ABBOTT-12P-163-0948253-00

PATIENT
  Age: 57 None
  Sex: Male
  Weight: 81.72 kg

DRUGS (11)
  1. HUMIRA 40 MG/0.8 ML PEN [Suspect]
     Indication: CROHN^S DISEASE
     Route: 058
  2. METOPROLOL [Concomitant]
     Indication: HYPERTENSION
  3. HYDROCHLOROTHIAZID [Concomitant]
     Indication: HYPERTENSION
  4. GABAPENTIN [Concomitant]
     Indication: NEUROPATHY PERIPHERAL
  5. AMITRIPTYLINE [Concomitant]
     Indication: NEUROPATHY PERIPHERAL
  6. ZOLPIDEM [Concomitant]
     Indication: SLEEP DISORDER THERAPY
  7. FLONASE [Concomitant]
     Indication: HYPERSENSITIVITY
  8. PERCOCET [Concomitant]
     Indication: PRODUCT USED FOR UNKNOWN INDICATION
  9. B12 [Concomitant]
     Indication: VITAMIN B12 DEFICIENCY
  10. MAGNESIUM CITRATE [Concomitant]
     Indication: RENAL LITHIASIS PROPHYLAXIS
  11. CITRACAL [Concomitant]
     Indication: RENAL LITHIASIS PROPHYLAXIS

REACTIONS (3)
  - Device malfunction [Unknown]
  - Injection site pain [Recovered/Resolved]
  - Injection site urticaria [Recovered/Resolved]
